FAERS Safety Report 7987156-9 (Version None)
Quarter: 2011Q4

REPORT INFORMATION
  Report Type: 
  Country: None (occurrence: None)
  Receive Date: 20111216
  Receipt Date: 20110930
  Transmission Date: 20120403
  Serious: No
  Sender: FDA-Public Use
  Company Number: US-BRISTOL-MYERS SQUIBB COMPANY-16121717

PATIENT
  Sex: Female

DRUGS (2)
  1. ZOLOFT [Suspect]
  2. ABILIFY [Suspect]

REACTIONS (2)
  - GALACTORRHOEA [None]
  - BLOOD GLUCOSE INCREASED [None]
